FAERS Safety Report 13666908 (Version 1)
Quarter: 2017Q2

REPORT INFORMATION
  Report Type: Spontaneous
  Country: US (occurrence: US)
  Receive Date: 20170619
  Receipt Date: 20170619
  Transmission Date: 20170830
  Serious: No
  Sender: FDA-Public Use
  Company Number: US-ROCHE-1300709

PATIENT
  Sex: Female

DRUGS (1)
  1. XELODA [Suspect]
     Active Substance: CAPECITABINE
     Indication: BREAST CANCER
     Dosage: TWO TWICE A DAY FOR 14 DAYS ON 7 DAYS OFF
     Route: 048
     Dates: start: 20131022

REACTIONS (6)
  - Fatigue [Unknown]
  - Hyperaesthesia [Unknown]
  - Stomatitis [Unknown]
  - Abdominal discomfort [Unknown]
  - Burning sensation [Unknown]
  - Erythema [Unknown]
